FAERS Safety Report 4443350-5 (Version None)
Quarter: 2004Q3

REPORT INFORMATION
  Report Type: 
  Country: None (occurrence: None)
  Receive Date: 20040907
  Receipt Date: 20040907
  Transmission Date: 20050211
  Serious: Yes (Other)
  Sender: FDA-Public Use
  Company Number: None

PATIENT
  Age: 55 Year
  Sex: Male
  Weight: 85.7 kg

DRUGS (9)
  1. DESIPRAMINE HCL [Suspect]
  2. GABAPENTIN [Concomitant]
  3. BUPROPION HCL [Concomitant]
  4. HYDROCHLOROTHIAZIDE [Concomitant]
  5. PROPRANOLOL HCL [Concomitant]
  6. FOSINOPRIL SODIUM [Concomitant]
  7. ACETAMINOPHEN [Concomitant]
  8. DESIPRAMINE HCL [Concomitant]
  9. GEMFIBROZIL [Concomitant]

REACTIONS (2)
  - ANXIETY [None]
  - TINNITUS [None]
